FAERS Safety Report 6766214-0 (Version None)
Quarter: 2010Q2

REPORT INFORMATION
  Report Type: 
  Country: None (occurrence: None)
  Receive Date: 20100611
  Receipt Date: 20100608
  Transmission Date: 20101027
  Serious: Yes (Death, Hospitalization, Other)
  Sender: FDA-Public Use
  Company Number: US-SANOFI-AVENTIS-2010SA033428

PATIENT
  Age: 72 Year
  Sex: Female
  Weight: 78.7 kg

DRUGS (25)
  1. LASIX [Suspect]
     Route: 048
  2. LASIX [Suspect]
     Route: 051
  3. LIPITOR [Suspect]
     Indication: LIPIDS ABNORMAL
     Route: 048
  4. CELEBREX [Suspect]
     Indication: ARTHRITIS
     Route: 065
     Dates: start: 20090101
  5. CELEBREX [Suspect]
     Route: 065
     Dates: start: 20090724, end: 20100118
  6. NORVASC [Suspect]
     Indication: HYPERTENSION
     Route: 065
  7. VERAPAMIL [Suspect]
     Indication: HYPERTENSION
     Route: 065
  8. TRAZODONE [Suspect]
     Indication: INSOMNIA
     Route: 065
  9. HYDROCODONE [Suspect]
     Indication: PAIN
     Dosage: DOSE:7.5 UNIT(S)
     Route: 065
  10. PROZAC [Suspect]
     Indication: DEPRESSION
     Route: 048
     Dates: start: 19990101
  11. MIRAPEX ^PHARMACIA + UPJOHN^ [Suspect]
     Dosage: DOSE:0.25 UNIT(S)
     Route: 048
  12. CORTICOSTEROIDS [Suspect]
     Indication: BACK DISORDER
     Route: 065
  13. VITAMIN D [Suspect]
     Indication: SUPPLEMENTATION THERAPY
     Route: 065
  14. ASPIRIN [Suspect]
     Indication: HYPERTENSION
     Route: 065
  15. ALISKIREN [Concomitant]
  16. AZITHROMYCIN [Concomitant]
  17. FLEXERIL [Concomitant]
  18. LOVENOX [Concomitant]
  19. PEPCID [Concomitant]
  20. ADVAIR DISKUS 100/50 [Concomitant]
  21. NOVOLOG [Concomitant]
  22. XOPENEX [Concomitant]
  23. NICODERM [Concomitant]
  24. PREDNISONE [Concomitant]
  25. TIOTROPIUM BROMIDE [Concomitant]

REACTIONS (12)
  - ACTIVITIES OF DAILY LIVING IMPAIRED [None]
  - AORTIC STENOSIS [None]
  - BACK PAIN [None]
  - CARDIAC ARREST [None]
  - CARDIAC FAILURE [None]
  - CHRONIC OBSTRUCTIVE PULMONARY DISEASE [None]
  - COUGH [None]
  - DEPRESSION [None]
  - HYPERTENSION [None]
  - INTERVERTEBRAL DISC DEGENERATION [None]
  - LIPIDS ABNORMAL [None]
  - RESTLESS LEGS SYNDROME [None]
